FAERS Safety Report 8565589-X (Version None)
Quarter: 2012Q3

REPORT INFORMATION
  Report Type: 
  Country: None (occurrence: None)
  Receive Date: 20120803
  Receipt Date: 20120720
  Transmission Date: 20120928
  Serious: Yes (Hospitalization, Other)
  Sender: FDA-Public Use
  Company Number: JP-PFIZER INC-2011259717

PATIENT
  Age: 26 Year
  Sex: Female

DRUGS (12)
  1. LASIX [Concomitant]
     Dosage: UNK
     Dates: start: 20100301, end: 20100823
  2. PRIMPERAN TAB [Concomitant]
     Dosage: UNK
     Dates: start: 20100301, end: 20100301
  3. ARMODAFINIL [Concomitant]
     Dosage: UNK
     Dates: start: 20100227, end: 20100306
  4. METHOTREXATE SODIUM [Suspect]
     Indication: CHRONIC MYELOID LEUKAEMIA
  5. LEVOFLOXACIN [Concomitant]
     Dosage: UNK
     Dates: start: 20100224, end: 20100308
  6. ADRIAMYCIN PFS [Suspect]
     Indication: CHRONIC MYELOID LEUKAEMIA
     Dosage: 35.2 MG, 1X/DAY
     Route: 042
     Dates: start: 20100226, end: 20100302
  7. ONCOVIN [Suspect]
     Indication: CHRONIC MYELOID LEUKAEMIA
     Dosage: 1.971 MG, 1X/DAY
     Route: 042
     Dates: start: 20100226, end: 20100302
  8. NEO-MINOPHAGEN C [Concomitant]
     Dosage: UNK
     Dates: start: 20100222, end: 20100303
  9. SPRYCEL [Suspect]
     Indication: CHRONIC MYELOID LEUKAEMIA
     Dosage: 70 MG
     Route: 048
     Dates: start: 20100301
  10. CYCLOPHOSPHAMIDE [Suspect]
     Indication: CHRONIC MYELOID LEUKAEMIA
     Dosage: 422.4 MG, 1X/DAY
     Route: 042
     Dates: start: 20100226, end: 20100302
  11. DECADRON PHOSPHATE [Concomitant]
     Dosage: UNK
     Dates: start: 20100226, end: 20100302
  12. ALLOPURINOL [Concomitant]
     Dosage: UNK
     Dates: end: 20100303

REACTIONS (7)
  - PLATELET COUNT DECREASED [None]
  - PLEURISY [None]
  - GASTROINTESTINAL HAEMORRHAGE [None]
  - NEUTROPHIL COUNT DECREASED [None]
  - CYTOMEGALOVIRUS ENTEROCOLITIS [None]
  - ANAEMIA [None]
  - ENTEROCOLITIS HAEMORRHAGIC [None]
